FAERS Safety Report 5201645-1 (Version None)
Quarter: 2007Q1

REPORT INFORMATION
  Report Type: 
  Country: None (occurrence: None)
  Receive Date: 20070108
  Receipt Date: 20070102
  Transmission Date: 20070707
  Serious: Yes (Life-Threatening, Other)
  Sender: FDA-Public Use
  Company Number: US-ABBOTT-07P-163-0354931-00

PATIENT
  Sex: Female

DRUGS (7)
  1. RITONAVIR SOFT GELATIN CAPSULES [Suspect]
     Indication: DRUG USE FOR UNKNOWN INDICATION
     Dates: start: 20060101
  2. LAMIVUDINE + ZIDOVUDINE [Suspect]
     Indication: HIV INFECTION
     Route: 048
     Dates: start: 20060101, end: 20060101
  3. ATAZANAVIR [Suspect]
     Indication: DRUG USE FOR UNKNOWN INDICATION
     Dates: start: 20060101
  4. BACTRIM [Concomitant]
     Indication: DRUG USE FOR UNKNOWN INDICATION
  5. AZITHROMYCIN [Concomitant]
     Indication: DRUG USE FOR UNKNOWN INDICATION
  6. ORAL CONTRACEPTIVE NOS [Concomitant]
     Indication: DRUG USE FOR UNKNOWN INDICATION
  7. EFAVIRENZ [Concomitant]
     Indication: DRUG USE FOR UNKNOWN INDICATION

REACTIONS (1)
  - HAEMOLYTIC ANAEMIA [None]
